FAERS Safety Report 4753240-6 (Version None)
Quarter: 2005Q3

REPORT INFORMATION
  Report Type: 
  Country: None (occurrence: None)
  Receive Date: 20050824
  Receipt Date: 20050815
  Transmission Date: 20060218
  Serious: Yes (Life-Threatening)
  Sender: FDA-Public Use
  Company Number: 216914

PATIENT
  Age: 53 Year
  Sex: Female

DRUGS (1)
  1. HERCEPTIN [Suspect]
     Indication: BREAST CANCER
     Dosage: 8 MG/KG
     Dates: start: 20050810

REACTIONS (5)
  - ANAPHYLACTIC REACTION [None]
  - ARTHROPOD BITE [None]
  - LOSS OF CONSCIOUSNESS [None]
  - SKIN IRRITATION [None]
  - TYPE IV HYPERSENSITIVITY REACTION [None]
